FAERS Safety Report 8620131-X (Version None)
Quarter: 2012Q3

REPORT INFORMATION
  Report Type: 
  Country: None (occurrence: None)
  Receive Date: 20120824
  Receipt Date: 20120820
  Transmission Date: 20120928
  Serious: Yes (Hospitalization)
  Sender: FDA-Public Use
  Company Number: US-JNJFOC-20120712699

PATIENT
  Sex: Female

DRUGS (8)
  1. ACIPHEX [Concomitant]
     Indication: GASTROOESOPHAGEAL REFLUX DISEASE
     Dates: start: 20080101
  2. MAGNESIUM [Concomitant]
     Indication: MIGRAINE
     Dates: start: 20080101
  3. PAMELOR [Concomitant]
     Indication: THROMBOSIS PROPHYLAXIS
     Dates: start: 20111103
  4. VITAMIN B-12 [Concomitant]
     Indication: MIGRAINE
     Dates: start: 20080101
  5. COUMADIN [Concomitant]
     Indication: THROMBOSIS PROPHYLAXIS
     Dates: start: 20111103
  6. LIBRAX [Concomitant]
     Indication: GASTROOESOPHAGEAL REFLUX DISEASE
     Dates: start: 20080101
  7. ULTRAM [Concomitant]
     Indication: ARTHRALGIA
     Dates: start: 20080101
  8. SIMPONI [Suspect]
     Indication: PRODUCT USED FOR UNKNOWN INDICATION
     Route: 058
     Dates: start: 20110911, end: 20111111

REACTIONS (8)
  - LIMB OPERATION [None]
  - INFECTION [None]
  - PULMONARY EMBOLISM [None]
  - HERPES ZOSTER [None]
  - MYCOBACTERIUM MARINUM INFECTION [None]
  - THROMBOSIS [None]
  - CELLULITIS [None]
  - NEOPLASM [None]
